FAERS Safety Report 20080165 (Version 1)
Quarter: 2021Q4

REPORT INFORMATION
  Report Type: Spontaneous
  Country: US (occurrence: US)
  Receive Date: 20211117
  Receipt Date: 20211117
  Transmission Date: 20220303
  Serious: No
  Sender: FDA-Public Use
  Company Number: US-GW PHARMA-202111USGW05503

PATIENT

DRUGS (3)
  1. EPIDIOLEX [Suspect]
     Active Substance: CANNABIDIOL
     Indication: Tuberous sclerosis complex
     Dosage: 8.02 MG/KG/DAY, 100 MILLIGRAM, BID
     Route: 048
     Dates: start: 202110, end: 2021
  2. EPIDIOLEX [Suspect]
     Active Substance: CANNABIDIOL
     Dosage: 12.03 MG/KG/DAY, 150 MILLIGRAM, BID
     Route: 048
     Dates: start: 2021, end: 2021
  3. EPIDIOLEX [Suspect]
     Active Substance: CANNABIDIOL
     Dosage: 16.04 MG/KG/DAY, 200 MILLIGRAM, BID
     Route: 048
     Dates: start: 2021

REACTIONS (1)
  - Psychomotor hyperactivity [Unknown]

NARRATIVE: CASE EVENT DATE: 20210101
